FAERS Safety Report 8232288-3 (Version None)
Quarter: 2012Q1

REPORT INFORMATION
  Report Type: 
  Country: None (occurrence: None)
  Receive Date: 20120323
  Receipt Date: 20120321
  Transmission Date: 20120608
  Serious: No
  Sender: FDA-Public Use
  Company Number: US-PFIZER INC-2012074326

PATIENT
  Sex: Male

DRUGS (3)
  1. VIAGRA [Suspect]
     Dosage: UNK
  2. TRAMADOL [Concomitant]
     Dosage: 50 MG, 1X/DAY
  3. IBUPROFEN [Suspect]
     Indication: BACK PAIN
     Dosage: 800 MG, 1X/DAY
     Route: 048
     Dates: start: 20111025

REACTIONS (2)
  - DIZZINESS [None]
  - DRUG INTOLERANCE [None]
